FAERS Safety Report 6272319-3 (Version None)
Quarter: 2009Q3

REPORT INFORMATION
  Report Type: 
  Country: None (occurrence: None)
  Receive Date: 20090713
  Receipt Date: 20080728
  Transmission Date: 20100115
  Serious: No
  Sender: FDA-Public Use
  Company Number: 2008BM000149

PATIENT
  Age: 32 Year
  Sex: Female

DRUGS (14)
  1. KUVAN [Suspect]
     Indication: PHENYLKETONURIA
     Dosage: 400 MG; QD; PO, 300 MG; QD; PO, 600 MG; QD; PO
     Route: 048
     Dates: start: 20080301, end: 20080501
  2. KUVAN [Suspect]
     Indication: PHENYLKETONURIA
     Dosage: 400 MG; QD; PO, 300 MG; QD; PO, 600 MG; QD; PO
     Route: 048
     Dates: start: 20080601, end: 20080801
  3. KUVAN [Suspect]
     Indication: PHENYLKETONURIA
     Dosage: 400 MG; QD; PO, 300 MG; QD; PO, 600 MG; QD; PO
     Route: 048
     Dates: start: 20080901
  4. TYLENOL /00020001/ (CON.) [Concomitant]
  5. MIDRIN /00920701/ (CON.) [Concomitant]
  6. SYNTHROID (CON.) [Concomitant]
  7. NUTRI3ENTS WITHOUT PHENYLALANINE (CON.) [Concomitant]
  8. CLARITIN /00413701/ (CON.) [Concomitant]
  9. ZINC (CON.) [Concomitant]
  10. DHA (CON.) [Concomitant]
  11. TUMS /00193601/ (CON.) [Concomitant]
  12. CALCIUM +D (CON.) [Concomitant]
  13. PRENATAL /00231801/ (CON.) [Concomitant]
  14. TYROSINE (CON.) [Concomitant]

REACTIONS (1)
  - DRUG EXPOSURE DURING PREGNANCY [None]
